FAERS Safety Report 9586182 (Version 1)
Quarter: 2013Q3

REPORT INFORMATION
  Report Type: Spontaneous
  Country: LK (occurrence: None)
  Receive Date: 20130926
  Receipt Date: 20130926
  Transmission Date: 20140515
  Serious: Yes (Hospitalization)
  Sender: FDA-Public Use
  Company Number: 2013-01244

PATIENT
  Age: 6 Year
  Sex: Female
  Weight: 27 kg

DRUGS (1)
  1. VALPROATE SODIUM [Suspect]
     Indication: COMPLEX PARTIAL SEIZURES
     Dosage: 20 MG/KG (UNKNOWN, PER DAY), UNKNOWN

REACTIONS (3)
  - Posterior reversible encephalopathy syndrome [None]
  - Acute hepatic failure [None]
  - Hepatic encephalopathy [None]
